FAERS Safety Report 5384013-1 (Version None)
Quarter: 2007Q3

REPORT INFORMATION
  Report Type: 
  Country: None (occurrence: None)
  Receive Date: 20070711
  Receipt Date: 20070705
  Transmission Date: 20080115
  Serious: Yes (Life-Threatening, Hospitalization)
  Sender: FDA-Public Use
  Company Number: GB-GENENTECH-242683

PATIENT
  Age: 39 Year
  Sex: Male

DRUGS (8)
  1. MABTHERA [Suspect]
     Indication: DRUG USE FOR UNKNOWN INDICATION
     Dosage: UNK, UNK
  2. CYCLOPHOSPHAMIDE [Suspect]
     Indication: DRUG USE FOR UNKNOWN INDICATION
     Dosage: 1400 MG, UNK
     Route: 041
     Dates: start: 20070308
  3. METHOTREXATE [Suspect]
     Indication: DRUG USE FOR UNKNOWN INDICATION
     Dosage: 12.5 MG, UNK
     Route: 037
     Dates: start: 20070308
  4. FILGRASTIM [Suspect]
     Indication: NON-HODGKIN'S LYMPHOMA
     Dates: start: 20070314, end: 20070510
  5. NEUPOGEN [Suspect]
     Indication: DRUG USE FOR UNKNOWN INDICATION
     Dosage: 30 MIU, UNK
     Route: 058
     Dates: start: 20070308
  6. PREDNISOLONE [Concomitant]
     Indication: DRUG USE FOR UNKNOWN INDICATION
     Dosage: 50 MG, QD
     Route: 048
     Dates: start: 20070308
  7. RANITIDINE [Concomitant]
     Indication: DRUG USE FOR UNKNOWN INDICATION
     Dosage: 150 MG, BID
     Route: 048
     Dates: start: 20070308
  8. VINCRISTINE [Concomitant]
     Indication: DRUG USE FOR UNKNOWN INDICATION
     Dosage: 2 MG, SINGLE
     Route: 040
     Dates: start: 20070308

REACTIONS (2)
  - PNEUMONITIS [None]
  - PULMONARY FIBROSIS [None]
